FAERS Safety Report 9470541 (Version 1)
Quarter: 2013Q3

REPORT INFORMATION
  Report Type: Spontaneous
  Country: US (occurrence: None)
  Receive Date: 20130820
  Receipt Date: 20130820
  Transmission Date: 20140515
  Serious: Yes (Disabling, Other)
  Sender: FDA-Public Use
  Company Number: None

PATIENT
  Sex: Male
  Weight: 97.07 kg

DRUGS (7)
  1. PROLIXIN [Suspect]
     Indication: SCHIZOAFFECTIVE DISORDER BIPOLAR TYPE
     Dosage: 1 SHOT EVERY 2 WEEKS BY INJECTION
     Dates: start: 20040915, end: 20050412
  2. PROLIXIN [Suspect]
     Indication: ABNORMAL BEHAVIOUR
     Dosage: 1 SHOT EVERY 2 WEEKS BY INJECTION
     Dates: start: 20040915, end: 20050412
  3. COLACE [Concomitant]
  4. ZANTAC [Concomitant]
  5. PRILOSEC [Concomitant]
  6. QVAR [Concomitant]
  7. VENTOLIN [Concomitant]

REACTIONS (2)
  - Myalgia [None]
  - Dyspnoea [None]
